FAERS Safety Report 8933592 (Version 1)
Quarter: 2012Q4

REPORT INFORMATION
  Report Type: 
  Country: CO (occurrence: CO)
  Receive Date: 20121129
  Receipt Date: 20121129
  Transmission Date: 20130627
  Serious: Yes (Other)
  Sender: FDA-Public Use
  Company Number: CO-PFIZER INC-2012299235

PATIENT
  Age: 86 Year
  Sex: Male

DRUGS (5)
  1. LYRICA [Suspect]
     Indication: SPINAL OPERATION
     Dosage: 150 mg, 1x/day at night
     Route: 048
     Dates: start: 2004
  2. LYRICA [Suspect]
     Indication: NEUROPATHY
  3. GLIMEPIRIDE [Concomitant]
     Indication: DIABETES
     Dosage: 3 tablets of 4 mg, 1x/day
     Route: 048
     Dates: start: 1997
  4. GALVUS MET [Concomitant]
     Indication: DIABETES
     Dosage: 2 tablets at 50 mg x 1000mg
     Route: 048
     Dates: start: 1997
  5. GLIBENCLAMIDE [Concomitant]
     Indication: DIABETES
     Dosage: 4 mg, UNK

REACTIONS (2)
  - Infarction [Recovered/Resolved]
  - Therapeutic response unexpected [Unknown]
